FAERS Safety Report 25608913 (Version 1)
Quarter: 2025Q3

REPORT INFORMATION
  Report Type: Spontaneous
  Country: GB (occurrence: GB)
  Receive Date: 20250726
  Receipt Date: 20250726
  Transmission Date: 20251021
  Serious: Yes (Other)
  Sender: CELLTRION
  Company Number: GB-CELLTRION INC.-2025GB024778

PATIENT

DRUGS (1)
  1. YUFLYMA [Suspect]
     Active Substance: ADALIMUMAB-AATY
     Indication: Rheumatoid arthritis
     Route: 058

REACTIONS (6)
  - Loss of consciousness [Unknown]
  - Asthenia [Unknown]
  - Lethargy [Unknown]
  - Cough [Unknown]
  - Hypertension [Unknown]
  - Nausea [Unknown]
